FAERS Safety Report 10469445 (Version 4)
Quarter: 2015Q2

REPORT INFORMATION
  Report Type: Spontaneous
  Country: US (occurrence: None)
  Receive Date: 20140919
  Receipt Date: 20150630
  Transmission Date: 20150821
  Serious: Yes (Hospitalization)
  Sender: FDA-Public Use
  Company Number: US-001248

PATIENT
  Age: 45 Year
  Sex: Female

DRUGS (23)
  1. ALPRAZOLAM. [Concomitant]
     Active Substance: ALPRAZOLAM
  2. GATTEX [Suspect]
     Active Substance: TEDUGLUTIDE\WATER
     Indication: SHORT-BOWEL SYNDROME
     Dosage: DF
     Route: 058
  3. ALBUTEROL SULFATE. [Concomitant]
     Active Substance: ALBUTEROL SULFATE
  4. SODIUM BICARBONATE. [Concomitant]
     Active Substance: SODIUM BICARBONATE
  5. LOPRESSOR [Concomitant]
     Active Substance: METOPROLOL TARTRATE
  6. CLOPIDROGEL SANDOZ [Concomitant]
  7. ONDANSETRON [Concomitant]
     Active Substance: ONDANSETRON
  8. ATORVASTATIN [Concomitant]
     Active Substance: ATORVASTATIN
  9. ISOSORBIDE MONONITRATE. [Concomitant]
     Active Substance: ISOSORBIDE MONONITRATE
  10. LIPASE [Concomitant]
     Active Substance: LIPASE
  11. LISINOPRIL. [Concomitant]
     Active Substance: LISINOPRIL
  12. LOVENOX [Concomitant]
     Active Substance: ENOXAPARIN SODIUM
  13. FOLIC ACID. [Concomitant]
     Active Substance: FOLIC ACID
  14. HYDROCORTISONE. [Concomitant]
     Active Substance: HYDROCORTISONE
  15. LOPERAMIDE [Concomitant]
     Active Substance: LOPERAMIDE
  16. METHOTREXATE [Concomitant]
     Active Substance: METHOTREXATE
  17. PERCOCET [Concomitant]
     Active Substance: ACETAMINOPHEN\OXYCODONE HYDROCHLORIDE
  18. SOLUTIONS FOR PARENTERAL NUTRITION [Concomitant]
     Active Substance: AMINO ACIDS\DEXTROSE\ELECTROLYTES NOS
  19. FLUTICASONE [Concomitant]
     Active Substance: FLUTICASONE\FLUTICASONE PROPIONATE
  20. PROTEASE [Concomitant]
     Active Substance: PROTEASE
  21. PANTOPRAZOLE [Concomitant]
     Active Substance: PANTOPRAZOLE SODIUM
  22. CARISOPRODOL. [Concomitant]
     Active Substance: CARISOPRODOL
  23. AMYLASE [Concomitant]
     Active Substance: AMYLASE

REACTIONS (9)
  - Nausea [None]
  - Flank pain [None]
  - Dialysis [None]
  - Renal artery thrombosis [None]
  - Renal tubular necrosis [None]
  - Renal failure [None]
  - Vomiting [None]
  - Chronic kidney disease [None]
  - Fluid overload [None]

NARRATIVE: CASE EVENT DATE: 201409
